FAERS Safety Report 5693812-8 (Version None)
Quarter: 2008Q2

REPORT INFORMATION
  Report Type: 
  Country: None (occurrence: None)
  Receive Date: 20080403
  Receipt Date: 19960209
  Transmission Date: 20081010
  Serious: Yes (Death, Other)
  Sender: FDA-Public Use
  Company Number: US-ROCHE-59254

PATIENT
  Age: 81 Year
  Sex: Male

DRUGS (8)
  1. TORADOL [Suspect]
     Route: 030
     Dates: start: 19941122, end: 19941127
  2. DEMEROL [Concomitant]
     Dates: start: 19941123
  3. PHENERGAN [Concomitant]
     Dates: start: 19941123
  4. NIFEDIPINE [Concomitant]
     Dates: start: 19941121, end: 19941126
  5. VOLTAREN [Concomitant]
     Route: 047
     Dates: start: 19941122, end: 19941127
  6. BISACODYL [Concomitant]
     Dates: start: 19941124
  7. FLAGYL [Concomitant]
     Dates: start: 19941122, end: 19941126
  8. ANCEF [Concomitant]
     Dates: start: 19941122, end: 19941126

REACTIONS (3)
  - DEATH [None]
  - GASTRIC HAEMORRHAGE [None]
  - HAEMATOCHEZIA [None]
